FAERS Safety Report 8997944 (Version 3)
Quarter: 2013Q3

REPORT INFORMATION
  Report Type: Spontaneous
  Country: US (occurrence: US)
  Receive Date: 20130104
  Receipt Date: 20130703
  Transmission Date: 20140515
  Serious: Yes (Hospitalization, Disabling, Other)
  Sender: FDA-Public Use
  Company Number: US-009507513-1301USA000907

PATIENT
  Sex: Female
  Weight: 49.43 kg

DRUGS (5)
  1. FOSAMAX [Suspect]
     Indication: OSTEOPENIA
     Dosage: 70 MG, QW
     Route: 048
     Dates: start: 200109
  2. ACTONEL [Suspect]
     Indication: OSTEOPENIA
     Dosage: 150 MG, QW
  3. ACTONEL [Suspect]
     Dosage: 35 UNK, UNK
     Dates: start: 20030910
  4. BONIVA [Suspect]
     Indication: OSTEOPENIA
     Dosage: 150 MG, QW
     Dates: start: 20051031, end: 201008
  5. CALCIUM (UNSPECIFIED) [Concomitant]
     Indication: OSTEOPENIA

REACTIONS (29)
  - Intramedullary rod insertion [Unknown]
  - Osteoporosis [Unknown]
  - Stress fracture [Unknown]
  - Laryngeal cancer [Unknown]
  - Bone density decreased [Unknown]
  - Femur fracture [Unknown]
  - Adverse event [Unknown]
  - Vascular stent insertion [Unknown]
  - Hypertension [Unknown]
  - Arteriosclerosis coronary artery [Unknown]
  - Coronary arterial stent insertion [Unknown]
  - Peripheral vascular disorder [Unknown]
  - Hypokalaemia [Unknown]
  - Hypothyroidism [Unknown]
  - Hyperlipidaemia [Unknown]
  - Raynaud^s phenomenon [Unknown]
  - Varicose vein [Unknown]
  - Varicose vein operation [Unknown]
  - Sinus bradycardia [Unknown]
  - Ventricular extrasystoles [Unknown]
  - Iliotibial band syndrome [Unknown]
  - Haemorrhage [Unknown]
  - Night sweats [Unknown]
  - Insomnia [Unknown]
  - Hot flush [Unknown]
  - Nausea [Unknown]
  - Arthralgia [Not Recovered/Not Resolved]
  - Anxiety [Unknown]
  - Depression [Unknown]
